FAERS Safety Report 4783945-2 (Version None)
Quarter: 2005Q3

REPORT INFORMATION
  Report Type: 
  Country: None (occurrence: None)
  Receive Date: 20050928
  Receipt Date: 20050715
  Transmission Date: 20060218
  Serious: Yes (Hospitalization)
  Sender: FDA-Public Use
  Company Number: 805#9#2005-00053

PATIENT
  Age: 28 Year
  Sex: Female

DRUGS (8)
  1. ALPROSTADIL [Suspect]
     Indication: HEART DISEASE CONGENITAL
     Dosage: 4.6 -92.2 NG/KG/MIN, MULTIPLE DOSE CHANGES , INTRAVENOUS DRIP
     Route: 041
     Dates: start: 20050603, end: 20050701
  2. AMPICILLIN [Concomitant]
  3. AMIKACIN SULFATE [Concomitant]
  4. MENATETRENONE (MENATETRENONE) [Concomitant]
  5. . [Concomitant]
  6. ... [Concomitant]
  7. . [Concomitant]
  8. . [Concomitant]

REACTIONS (11)
  - APNOEA [None]
  - ATELECTASIS [None]
  - CONDITION AGGRAVATED [None]
  - DRUG EFFECT DECREASED [None]
  - HEART RATE INCREASED [None]
  - HYPONATRAEMIA [None]
  - INCREASED UPPER AIRWAY SECRETION [None]
  - OBSTRUCTIVE AIRWAYS DISORDER [None]
  - PULMONARY ARTERY ATRESIA [None]
  - PYREXIA [None]
  - URINE OUTPUT DECREASED [None]
